FAERS Safety Report 26154138 (Version 1)
Quarter: 2025Q4

REPORT INFORMATION
  Report Type: Other
  Country: US (occurrence: US)
  Receive Date: 20251215
  Receipt Date: 20251215
  Transmission Date: 20260118
  Serious: Yes (Other)
  Sender: NODEN PHARMA
  Company Number: US-NODENP-NOD202512-000143

PATIENT
  Age: 68 Year
  Sex: Male

DRUGS (1)
  1. COCAINE [Suspect]
     Active Substance: COCAINE
     Indication: Product used for unknown indication
     Dosage: UNKNOWN

REACTIONS (1)
  - Anti-neutrophil cytoplasmic antibody positive vasculitis [Unknown]
